FAERS Safety Report 6921799-6 (Version None)
Quarter: 2010Q3

REPORT INFORMATION
  Report Type: 
  Country: None (occurrence: None)
  Receive Date: 20100812
  Receipt Date: 20100803
  Transmission Date: 20110219
  Serious: Yes (Hospitalization)
  Sender: FDA-Public Use
  Company Number: US-SANOFI-AVENTIS-2010SA047591

PATIENT
  Age: 68 Year
  Sex: Male

DRUGS (1)
  1. UROXATRAL [Suspect]
     Indication: ILL-DEFINED DISORDER
     Route: 048

REACTIONS (2)
  - APHAGIA [None]
  - GASTROINTESTINAL DISORDER [None]
